FAERS Safety Report 19232968 (Version 3)
Quarter: 2021Q3

REPORT INFORMATION
  Report Type: Report from Study
  Country: None (occurrence: AU)
  Receive Date: 20210507
  Receipt Date: 20210713
  Transmission Date: 20211014
  Serious: Yes (Hospitalization, Other)
  Sender: FDA-Public Use
  Company Number: AU-ABBVIE-21K-008-3834163-00

PATIENT
  Age: 63 Year
  Sex: Male

DRUGS (1)
  1. HUMIRA [Suspect]
     Active Substance: ADALIMUMAB
     Indication: RHEUMATOID ARTHRITIS
     Route: 058
     Dates: start: 202009, end: 202103

REACTIONS (5)
  - Cataract [Recovering/Resolving]
  - Peripheral artery occlusion [Not Recovered/Not Resolved]
  - Thrombosis [Unknown]
  - Arterial occlusive disease [Unknown]
  - Off label use [Unknown]

NARRATIVE: CASE EVENT DATE: 202103
